FAERS Safety Report 8985638 (Version 1)
Quarter: 2012Q4

REPORT INFORMATION
  Report Type: Report from Study
  Country: US (occurrence: US)
  Receive Date: 20121226
  Receipt Date: 20121226
  Transmission Date: 20130627
  Serious: No
  Sender: FDA-Public Use
  Company Number: US-ABBOTT-12P-163-0955609-00

PATIENT
  Sex: Male

DRUGS (1)
  1. LUPRON DEPOT [Suspect]
     Indication: PROSTATE CANCER
     Dates: start: 201009

REACTIONS (4)
  - Dysuria [Unknown]
  - Genital burning sensation [Unknown]
  - Anorectal discomfort [Unknown]
  - Groin pain [Unknown]
